FAERS Safety Report 15930997 (Version 1)
Quarter: 2019Q1

REPORT INFORMATION
  Report Type: Spontaneous
  Country: CN (occurrence: CN)
  Receive Date: 20190207
  Receipt Date: 20190207
  Transmission Date: 20190417
  Serious: Yes (Other)
  Sender: FDA-Public Use
  Company Number: CN-SA-2019SA021414

PATIENT
  Age: 31 Year
  Sex: Female

DRUGS (9)
  1. PACLITAXEL. [Suspect]
     Active Substance: PACLITAXEL
     Indication: GESTATIONAL TROPHOBLASTIC TUMOUR
     Dosage: 150 MG/M2, QCY, DAY 1, Q14
     Route: 042
  2. OXALIPLATIN. [Suspect]
     Active Substance: OXALIPLATIN
     Indication: METASTASES TO LUNG
     Dosage: PATIENT RECEIVED 3 MORE COURSES OF THIS REGIMEN
  3. GEMCITABINE HYDROCHLORIDE. [Suspect]
     Active Substance: GEMCITABINE HYDROCHLORIDE
     Indication: METASTASES TO LUNG
     Dosage: PATIENT RECEIVED 3 MORE COURSES OF THIS REGIMEN
  4. OXALIPLATIN. [Suspect]
     Active Substance: OXALIPLATIN
     Dosage: 13-HCG LEVEL DECLINED TO NORMAL AFTER 3 COURSES
  5. OXALIPLATIN. [Suspect]
     Active Substance: OXALIPLATIN
     Indication: GESTATIONAL TROPHOBLASTIC TUMOUR
     Dosage: 100 MG/M2, QCY, DAY 1 OF A 2-WEEK CYCLE
     Route: 042
  6. PACLITAXEL. [Suspect]
     Active Substance: PACLITAXEL
     Indication: METASTASES TO LUNG
     Dosage: PATIENT RECEIVED 3 MORE COURSES OF THIS REGIMEN
  7. GEMCITABINE HYDROCHLORIDE. [Suspect]
     Active Substance: GEMCITABINE HYDROCHLORIDE
     Indication: GESTATIONAL TROPHOBLASTIC TUMOUR
     Dosage: 800 MG/M2, QCY, DAY 1, Q14
     Route: 042
  8. GEMCITABINE HYDROCHLORIDE. [Suspect]
     Active Substance: GEMCITABINE HYDROCHLORIDE
     Dosage: 13-HCG LEVEL DECLINED TO NORMAL AFTER 3 COURSES
  9. PACLITAXEL. [Suspect]
     Active Substance: PACLITAXEL
     Dosage: 13-HCG LEVEL DECLINED TO NORMAL AFTER 3 COURSES

REACTIONS (2)
  - Neutropenia [Recovered/Resolved]
  - Haematotoxicity [Unknown]
